FAERS Safety Report 25900247 (Version 1)
Quarter: 2025Q4

REPORT INFORMATION
  Report Type: Report from Study
  Country: EU (occurrence: EU)
  Receive Date: 20251009
  Receipt Date: 20251009
  Transmission Date: 20260117
  Serious: Yes (Hospitalization)
  Sender: ABBVIE
  Company Number: EU-ABBVIE-6495443

PATIENT
  Age: 75 Year
  Sex: Male

DRUGS (1)
  1. FOSCARBIDOPA\FOSLEVODOPA [Suspect]
     Active Substance: FOSCARBIDOPA\FOSLEVODOPA
     Indication: Parkinson^s disease
     Dosage: DAILY DOSE: 1.454,4 MG ?CRL: 0.18ML/HR ?CRB: 0.27ML/HR ?CRH: 0.27ML/HR ED: ?0.15ML LD: 0ML??LAST ...
     Route: 058
     Dates: start: 20250325

REACTIONS (1)
  - Arthrodesis [Not Recovered/Not Resolved]

NARRATIVE: CASE EVENT DATE: 20250801
